FAERS Safety Report 19034309 (Version 3)
Quarter: 2021Q2

REPORT INFORMATION
  Report Type: Report from Study
  Country: US (occurrence: US)
  Receive Date: 20210319
  Receipt Date: 20210510
  Transmission Date: 20210717
  Serious: Yes (Hospitalization)
  Sender: FDA-Public Use
  Company Number: US-GLAXOSMITHKLINE-US2021GSK054508

PATIENT
  Age: 39 Year
  Sex: Female
  Weight: 45.4 kg

DRUGS (27)
  1. DOSTARLIMAB [Suspect]
     Active Substance: DOSTARLIMAB
     Indication: ADENOCARCINOMA PANCREAS
     Dosage: 500 MG , 1 EVERY 3 WEEKS
     Route: 042
     Dates: start: 20210222, end: 20210222
  2. HYDROMORPHONE [Concomitant]
     Active Substance: HYDROMORPHONE
     Dosage: 4 MG, Z (EVERY 4 HOURS )
  3. METOCLOPRAMIDE HYDROCHLORIDE. [Concomitant]
     Active Substance: METOCLOPRAMIDE HYDROCHLORIDE
     Dosage: 10 MG, BID
  4. ENOXAPARIN [Concomitant]
     Active Substance: ENOXAPARIN
     Dosage: 60 MG/0.6 ML
     Route: 058
  5. METHADONE [Concomitant]
     Active Substance: METHADONE HYDROCHLORIDE
     Dosage: 5 MG
  6. NIRAPARIB [Suspect]
     Active Substance: NIRAPARIB
     Indication: ADENOCARCINOMA PANCREAS
     Dosage: 200 MG, QD
     Route: 048
     Dates: start: 20210222, end: 20210303
  7. POTASSIUM CHLORIDE. [Concomitant]
     Active Substance: POTASSIUM CHLORIDE
     Dosage: 20 MG, BID
     Route: 048
  8. POLYETHYLENE GLYCOL [Concomitant]
     Active Substance: POLYETHYLENE GLYCOLS
     Dosage: 17 G, QD (PACKET)
     Route: 048
  9. ACETAMINOPHEN. [Concomitant]
     Active Substance: ACETAMINOPHEN
     Dosage: 325 MG, U
     Route: 048
  10. NALOXONE [Concomitant]
     Active Substance: NALOXONE
     Dosage: 1 MG/ML
  11. OMEPRAZOLE. [Concomitant]
     Active Substance: OMEPRAZOLE
     Dosage: 40 MG
  12. NIRAPARIB [Suspect]
     Active Substance: NIRAPARIB
     Dosage: UNK
     Route: 048
     Dates: start: 20210304, end: 20210305
  13. ACETAMINOPHEN. [Concomitant]
     Active Substance: ACETAMINOPHEN
     Dosage: 500 MG, Z (EVERY 6 HOURS)
  14. BISACODYL. [Concomitant]
     Active Substance: BISACODYL
     Dosage: 10 MG
  15. LORAZEPAM. [Concomitant]
     Active Substance: LORAZEPAM
     Dosage: 0.5 MG
  16. ONDANSETRON [Concomitant]
     Active Substance: ONDANSETRON
     Dosage: 4 MG
  17. MORPHINE EXTENDED RELEASE TABLET [Concomitant]
     Active Substance: MORPHINE SULFATE
     Dosage: 30 MG, BID
     Route: 048
  18. APIXABAN [Concomitant]
     Active Substance: APIXABAN
     Indication: THROMBOCYTOPENIA
     Dosage: 5 MG, BID
  19. TRAZODONE [Concomitant]
     Active Substance: TRAZODONE HYDROCHLORIDE
     Dosage: 50 MG
  20. SENNA [Concomitant]
     Active Substance: SENNA LEAF\SENNOSIDES\SENNOSIDES A AND B
     Dosage: 8.6 MG
  21. SIMETHICONE (DIMETHICONE) [Concomitant]
     Active Substance: DIMETHICONE
     Dosage: 80 MG
     Route: 048
  22. LEVETIRACETAM. [Concomitant]
     Active Substance: LEVETIRACETAM
     Dosage: 1000 MG, BID
  23. MORPHINE EXTENDED RELEASE TABLET [Concomitant]
     Active Substance: MORPHINE SULFATE
     Dosage: 60 MG, U
     Route: 048
  24. MAGNESIUM OXIDE. [Concomitant]
     Active Substance: MAGNESIUM OXIDE
     Dosage: 400 MG
  25. CARBAMAZEPINE. [Concomitant]
     Active Substance: CARBAMAZEPINE
  26. PROCHLORPERAZINE. [Concomitant]
     Active Substance: PROCHLORPERAZINE
     Dosage: 10 MG
     Route: 048
  27. OLANZAPINE. [Concomitant]
     Active Substance: OLANZAPINE
     Dosage: 5 MG

REACTIONS (23)
  - Gastritis [Unknown]
  - Insomnia [Unknown]
  - Embolism [Unknown]
  - Delirium [Unknown]
  - Hypoalbuminaemia [Unknown]
  - Dyspnoea [Unknown]
  - Abdominal pain [Unknown]
  - Nausea [Unknown]
  - Vomiting [Unknown]
  - Vomiting [Unknown]
  - Tachycardia [Unknown]
  - Haematemesis [Unknown]
  - Constipation [Unknown]
  - Hiccups [Unknown]
  - Anaemia [Unknown]
  - Melaena [Unknown]
  - Fatigue [Unknown]
  - Ascites [Unknown]
  - Nausea [Unknown]
  - Haematemesis [Unknown]
  - Dry mouth [Unknown]
  - Abdominal pain [Unknown]
  - Back pain [Unknown]

NARRATIVE: CASE EVENT DATE: 20210223
